FAERS Safety Report 12683917 (Version 1)
Quarter: 2016Q3

REPORT INFORMATION
  Report Type: Report from Study
  Country: US (occurrence: US)
  Receive Date: 20160825
  Receipt Date: 20160825
  Transmission Date: 20161109
  Serious: No
  Sender: FDA-Public Use
  Company Number: US-009507513-1608USA006403

PATIENT
  Age: 59 Year
  Sex: Female

DRUGS (1)
  1. JANUMET [Suspect]
     Active Substance: METFORMIN HYDROCHLORIDE\SITAGLIPTIN PHOSPHATE
     Indication: DIABETES MELLITUS
     Dosage: 50/100 MG, BID
     Route: 048
     Dates: start: 20100310

REACTIONS (1)
  - Prescribed underdose [Unknown]

NARRATIVE: CASE EVENT DATE: 20160809
